FAERS Safety Report 19653507 (Version 1)
Quarter: 2021Q3

REPORT INFORMATION
  Report Type: Spontaneous
  Country: US (occurrence: US)
  Receive Date: 20210803
  Receipt Date: 20210803
  Transmission Date: 20211014
  Serious: Yes (Other)
  Sender: FDA-Public Use
  Company Number: US-GILEAD-2021-0542587

PATIENT
  Sex: Male

DRUGS (12)
  1. ATIVAN [Concomitant]
     Active Substance: LORAZEPAM
  2. BACTRIM [Concomitant]
     Active Substance: SULFAMETHOXAZOLE\TRIMETHOPRIM
  3. SEROQUEL [Concomitant]
     Active Substance: QUETIAPINE FUMARATE
  4. ACETAMINOPHEN. [Concomitant]
     Active Substance: ACETAMINOPHEN
  5. LACTULOSE. [Concomitant]
     Active Substance: LACTULOSE
  6. PERIDEX [DEXAMETHASONE] [Concomitant]
     Active Substance: DEXAMETHASONE
  7. XIFAXAN [Concomitant]
     Active Substance: RIFAXIMIN
  8. SOFOSBUVIR;VELPATASVIR [Suspect]
     Active Substance: SOFOSBUVIR\VELPATASVIR
     Indication: CHRONIC HEPATITIS C
     Dosage: 1 DOSAGE FORM, QD
     Route: 048
  9. VITAMIN D3 [Concomitant]
     Active Substance: CHOLECALCIFEROL
  10. FOLIC ACID. [Concomitant]
     Active Substance: FOLIC ACID
  11. ZOLOFT [Concomitant]
     Active Substance: SERTRALINE HYDROCHLORIDE
  12. OXYCODONE [Concomitant]
     Active Substance: OXYCODONE

REACTIONS (5)
  - Dizziness [Unknown]
  - Nausea [Unknown]
  - Drug ineffective [Not Recovered/Not Resolved]
  - Insomnia [Unknown]
  - Abdominal pain upper [Unknown]
